FAERS Safety Report 18144873 (Version 1)
Quarter: 2020Q3

REPORT INFORMATION
  Report Type: Spontaneous
  Country: US (occurrence: US)
  Receive Date: 20200812
  Receipt Date: 20200812
  Transmission Date: 20201103
  Serious: Yes (Death)
  Sender: FDA-Public Use
  Company Number: None

PATIENT
  Sex: Male

DRUGS (9)
  1. ZOLOFT?? [Concomitant]
  2. WARFARIN?? [Concomitant]
  3. SIMVASTATIN?? [Concomitant]
  4. TACROLIMUS 0.5MG [Suspect]
     Active Substance: TACROLIMUS
     Indication: RENAL TRANSPLANT
     Route: 048
     Dates: start: 20180112
  5. MYCOPHENOLATE 250MG [Suspect]
     Active Substance: MYCOPHENOLIC ACID
     Indication: RENAL TRANSPLANT
     Route: 048
     Dates: start: 20180111
  6. LOSARTAN?? [Concomitant]
  7. MAGNESIUM?? [Concomitant]
  8. KLONOPIN?? [Concomitant]
  9. SYNTHROID?? [Concomitant]

REACTIONS (1)
  - Death [None]
